FAERS Safety Report 10143365 (Version 2)
Quarter: 2014Q2

REPORT INFORMATION
  Report Type: Spontaneous
  Country: CA (occurrence: CA)
  Receive Date: 20140430
  Receipt Date: 20140507
  Transmission Date: 20141212
  Serious: No
  Sender: FDA-Public Use
  Company Number: CA-B.I. PHARMACEUTICALS,INC./RIDGEFIELD-2014-BI-18984CN

PATIENT
  Age: 63 Year
  Sex: Male

DRUGS (2)
  1. TRAJENTA [Suspect]
     Indication: DIABETES MELLITUS
     Route: 065
     Dates: start: 201304
  2. MEDICATION NOT FURTHER SPECIFIED [Concomitant]
     Route: 065

REACTIONS (1)
  - Pemphigoid [Unknown]
